FAERS Safety Report 15650651 (Version 1)
Quarter: 2018Q4

REPORT INFORMATION
  Report Type: Report from Study
  Country: ES (occurrence: ES)
  Receive Date: 20181123
  Receipt Date: 20181123
  Transmission Date: 20190205
  Serious: Yes (Death, Life-Threatening, Hospitalization)
  Sender: FDA-Public Use
  Company Number: ES-ACCORD-093868

PATIENT
  Age: 58 Year
  Sex: Female

DRUGS (5)
  1. FUROSEMIDE. [Suspect]
     Active Substance: FUROSEMIDE
     Indication: CIRRHOSIS ALCOHOLIC
     Route: 048
     Dates: start: 20160304, end: 20160313
  2. PHENOBARBITAL. [Concomitant]
     Active Substance: PHENOBARBITAL
     Indication: CIRRHOSIS ALCOHOLIC
     Route: 048
     Dates: start: 20160308
  3. RIFAXIMIN. [Concomitant]
     Active Substance: RIFAXIMIN
     Indication: CIRRHOSIS ALCOHOLIC
     Route: 048
     Dates: start: 2011, end: 20160313
  4. SPIRONOLACTONE. [Interacting]
     Active Substance: SPIRONOLACTONE
     Indication: HEPATIC CIRRHOSIS
     Route: 048
     Dates: start: 20160304, end: 20160313
  5. NORFLOXACIN/NORFLOXACIN HYDROCHLORIDE [Interacting]
     Active Substance: NORFLOXACIN HYDROCHLORIDE
     Indication: CIRRHOSIS ALCOHOLIC
     Route: 048
     Dates: start: 201510, end: 20160313

REACTIONS (4)
  - Hyperkalaemia [Recovered/Resolved]
  - Drug interaction [Unknown]
  - Hepatic encephalopathy [Recovered/Resolved]
  - Cardio-respiratory arrest [Fatal]

NARRATIVE: CASE EVENT DATE: 20160312
